FAERS Safety Report 17760753 (Version 1)
Quarter: 2020Q2

REPORT INFORMATION
  Report Type: Spontaneous
  Country: US (occurrence: US)
  Receive Date: 20200508
  Receipt Date: 20200508
  Transmission Date: 20200714
  Serious: Yes (Other)
  Sender: FDA-Public Use
  Company Number: None

PATIENT
  Age: 55 Year
  Sex: Male
  Weight: 110.25 kg

DRUGS (19)
  1. METOPROLOL TARTRATE (LOPRESSOR) [Concomitant]
  2. ATORVASTATIN CALCIUM (LIPITOR) [Concomitant]
  3. NATURAL ZINC [Concomitant]
  4. VITA BREEZE [Concomitant]
  5. CURCUMIN [Concomitant]
     Active Substance: CURCUMIN
  6. TETRACYCLINE HCL [Suspect]
     Active Substance: TETRACYCLINE HYDROCHLORIDE
     Indication: SINUSITIS
     Dosage: ?          QUANTITY:40 CAPSULE(S);?
     Route: 048
     Dates: start: 20200108, end: 20200118
  7. ASPIRIN. [Concomitant]
     Active Substance: ASPIRIN
  8. FLUSH FREE [Concomitant]
  9. VITAMIN D3 [Concomitant]
     Active Substance: CHOLECALCIFEROL
  10. SPIRONOLACTONE (ALDACTONE) [Concomitant]
  11. EQUATE VISION FORMULA [Concomitant]
  12. TETRACYCLINE 500 MG CAP HER [Suspect]
     Active Substance: TETRACYCLINE HYDROCHLORIDE
     Indication: SINUSITIS
     Dosage: ?          QUANTITY:84 CAPSULE(S);?
     Route: 048
     Dates: start: 20200228, end: 20200321
  13. PURE TURMERIC [Concomitant]
  14. NORVASC [Concomitant]
     Active Substance: AMLODIPINE BESYLATE
  15. MEN^S MULTI-VITAMIN NATUREWISE [Concomitant]
  16. C3 W/BIOPERINE [Concomitant]
  17. BUSPIRONE HCL (BUSPAR) [Concomitant]
  18. VITAMIN W/LUTEIN (OCUVITE) [Concomitant]
  19. NIACIN. [Concomitant]
     Active Substance: NIACIN

REACTIONS (2)
  - Recalled product administered [None]
  - Therapeutic product effect decreased [None]

NARRATIVE: CASE EVENT DATE: 20200508
